FAERS Safety Report 6501590-5 (Version None)
Quarter: 2009Q4

REPORT INFORMATION
  Report Type: 
  Country: None (occurrence: None)
  Receive Date: 20091216
  Receipt Date: 20090706
  Transmission Date: 20100525
  Serious: No
  Sender: FDA-Public Use
  Company Number: US-BRISTOL-MYERS SQUIBB COMPANY-14689434

PATIENT
  Age: 4 Year
  Sex: Female

DRUGS (1)
  1. ABILIFY [Suspect]
     Dosage: ABILIFY LIQUID 150ML BOTTLE;RESTARTED ON 03JUL09
     Route: 048
     Dates: start: 20090504

REACTIONS (1)
  - LETHARGY [None]
